FAERS Safety Report 9008487 (Version 2)
Quarter: 2013Q1

REPORT INFORMATION
  Report Type: Spontaneous
  Country: US (occurrence: US)
  Receive Date: 20130111
  Receipt Date: 20130215
  Transmission Date: 20140127
  Serious: Yes (Hospitalization, Disabling, Other)
  Sender: FDA-Public Use
  Company Number: US-PFIZER INC-2013009730

PATIENT
  Age: 54 Year
  Sex: Female

DRUGS (10)
  1. LYRICA [Suspect]
     Indication: DIABETIC NEUROPATHY
     Dosage: 150 MG, 2X/DAY
     Route: 048
  2. LYRICA [Suspect]
     Dosage: UNK
     Route: 048
     Dates: start: 2010
  3. ONGLYZA [Concomitant]
     Indication: TYPE 2 DIABETES MELLITUS
     Dosage: 5 MG, 1X/DAY
  4. LISINOPRIL [Concomitant]
     Dosage: 20 MG, 1X/DAY
  5. TRIAM/ HCTZ [Concomitant]
     Dosage: UNK, 37.5/25 DAILY
  6. NAPROXEN [Concomitant]
     Dosage: 500 MG, 2X/DAY
  7. NIACIN ER [Concomitant]
     Dosage: UNK
  8. ASPIRIN [Concomitant]
     Dosage: UNK
  9. BYETTA [Concomitant]
     Dosage: 10 MG, 1X/DAY
  10. LIDOCAINE [Concomitant]
     Indication: ARTHROPATHY
     Dosage: 3% CREAM

REACTIONS (3)
  - Fall [Recovered/Resolved]
  - Limb injury [Recovered/Resolved]
  - Foot fracture [Recovered/Resolved]
